FAERS Safety Report 4618403-9 (Version None)
Quarter: 2005Q1

REPORT INFORMATION
  Report Type: 
  Country: None (occurrence: None)
  Receive Date: 20050324
  Receipt Date: 20050303
  Transmission Date: 20050727
  Serious: Yes (Hospitalization)
  Sender: FDA-Public Use
  Company Number: DE_050315367

PATIENT
  Age: 82 Year
  Sex: Female

DRUGS (4)
  1. FLUOXETINE [Suspect]
     Indication: DEPRESSION
     Dosage: 20 MG DAY
     Dates: start: 20010520, end: 20010626
  2. FLUOXETINE [Suspect]
     Indication: DISEASE RECURRENCE
     Dosage: 20 MG DAY
     Dates: start: 20010520, end: 20010626
  3. AMITRIPTYLINE HCL [Concomitant]
  4. TRANXILIUM (CLORAZEPAE DIPOTASSIUM) [Concomitant]

REACTIONS (2)
  - BLOOD PRESSURE DECREASED [None]
  - CIRCULATORY COLLAPSE [None]
